FAERS Safety Report 26201244 (Version 1)
Quarter: 2025Q4

REPORT INFORMATION
  Report Type: Spontaneous
  Country: US (occurrence: US)
  Receive Date: 20251226
  Receipt Date: 20251226
  Transmission Date: 20260117
  Serious: Yes (Hospitalization)
  Sender: ORION PHARMA
  Company Number: US-MLMSERVICE-20251210-PI744958-00218-1

PATIENT
  Age: 80 Year
  Sex: Male

DRUGS (2)
  1. METHOTREXATE [Interacting]
     Active Substance: METHOTREXATE
     Indication: Rheumatoid arthritis
     Route: 048
  2. LANSOPRAZOLE [Interacting]
     Active Substance: LANSOPRAZOLE

REACTIONS (10)
  - Stomatitis [Unknown]
  - Pancytopenia [Recovering/Resolving]
  - Folliculitis [Recovering/Resolving]
  - Klebsiella infection [Recovering/Resolving]
  - Drug interaction [Recovering/Resolving]
  - Serratia infection [Recovering/Resolving]
  - Toxicity to various agents [Unknown]
  - Skin candida [Unknown]
  - Product substitution issue [Unknown]
  - Product complaint [Unknown]
